FAERS Safety Report 4898000-0 (Version None)
Quarter: 2006Q1

REPORT INFORMATION
  Report Type: 
  Country: None (occurrence: None)
  Receive Date: 20060130
  Receipt Date: 20060118
  Transmission Date: 20060701
  Serious: Yes (Death, Hospitalization)
  Sender: FDA-Public Use
  Company Number: B0407510A

PATIENT
  Age: 44 Year
  Sex: Male

DRUGS (8)
  1. RETROVIR [Suspect]
     Indication: HIV INFECTION
     Dates: start: 19980101
  2. EPIVIR [Suspect]
     Indication: HIV INFECTION
     Dates: start: 19980101
  3. INDINIVIR SULFATE [Suspect]
     Indication: HIV INFECTION
     Dates: start: 19980101
  4. DIDANOSINE (DIDANOSNE) [Suspect]
     Indication: HIV INFECTION
  5. STAVUDINE [Suspect]
     Indication: HIV INFECTION
  6. RITONAVIR (RITONAVIR) [Suspect]
     Indication: HIV INFECTION
     Dates: start: 20030801
  7. TENOFOVIR (TENOFOVIR) [Suspect]
  8. ATAZANAVIR (ATAZANAVIR) [Suspect]
     Indication: HIV INFECTION

REACTIONS (23)
  - ANAEMIA [None]
  - BLOOD HIV RNA DECREASED [None]
  - BLOOD LACTATE DEHYDROGENASE INCREASED [None]
  - BLOOD LACTIC ACID INCREASED [None]
  - CACHEXIA [None]
  - CARDIAC ARREST [None]
  - DIARRHOEA [None]
  - EMBOLISM [None]
  - HERPES ZOSTER MULTI-DERMATOMAL [None]
  - HYPERBILIRUBINAEMIA [None]
  - HYPERCOAGULATION [None]
  - LEG AMPUTATION [None]
  - MYALGIA [None]
  - NERVOUS SYSTEM DISORDER [None]
  - PERIPHERAL EMBOLISM [None]
  - PNEUMOCYSTIS JIROVECI PNEUMONIA [None]
  - PROCEDURAL COMPLICATION [None]
  - PROTEIN S DECREASED [None]
  - RESPIRATORY DISTRESS [None]
  - RETROVIRAL INFECTION [None]
  - THERAPEUTIC RESPONSE DECREASED [None]
  - TRANSAMINASES INCREASED [None]
  - TREATMENT NONCOMPLIANCE [None]
